FAERS Safety Report 10488440 (Version 1)
Quarter: 2014Q3

REPORT INFORMATION
  Report Type: Spontaneous
  Country: DE (occurrence: None)
  Receive Date: 20140916
  Receipt Date: 20140916
  Transmission Date: 20150326
  Serious: Yes (Hospitalization)
  Sender: FDA-Public Use
  Company Number: GTI002525

PATIENT
  Sex: Male

DRUGS (15)
  1. MOVICOL [Concomitant]
     Active Substance: POLYETHYLENE GLYCOL 3350\POTASSIUM CHLORIDE\SODIUM BICARBONATE\SODIUM CHLORIDE
  2. CYMBALTA [Concomitant]
     Active Substance: DULOXETINE HYDROCHLORIDE
  3. SIMVASTATIN. [Concomitant]
     Active Substance: SIMVASTATIN
  4. PANTOZOL [Concomitant]
     Active Substance: PANTOPRAZOLE SODIUM
  5. GABAPENTIN. [Concomitant]
     Active Substance: GABAPENTIN
  6. AMITRIPTYLIN [Concomitant]
     Active Substance: AMITRIPTYLINE
  7. NOVAMINSULFON [Concomitant]
     Active Substance: METAMIZOLE
  8. EUCREAS [Concomitant]
     Active Substance: METFORMIN HYDROCHLORIDE\VILDAGLIPTIN
  9. TORASEMID [Concomitant]
     Active Substance: TORSEMIDE
  10. TILIDIN COMP [Concomitant]
     Active Substance: NALOXONE HYDROCHLORIDE\TILIDINE HYDROCHLORIDE
  11. TEGRETAL [Concomitant]
     Active Substance: CARBAMAZEPINE
  12. GAMUNEX [Suspect]
     Active Substance: HUMAN IMMUNOGLOBULIN G
     Indication: CHRONIC INFLAMMATORY DEMYELINATING POLYRADICULONEUROPATHY
     Route: 042
     Dates: start: 20110314
  13. GLUCOPHAGE [Concomitant]
     Active Substance: METFORMIN HYDROCHLORIDE
  14. GALVUS [Concomitant]
     Active Substance: VILDAGLIPTIN
  15. ZANTAC [Concomitant]
     Active Substance: RANITIDINE HYDROCHLORIDE

REACTIONS (13)
  - Hypoaesthesia [None]
  - Gait disturbance [None]
  - Pneumonia [None]
  - Atrial fibrillation [None]
  - Pleural effusion [None]
  - Fatigue [None]
  - Respiratory distress [None]
  - Cardiac failure [None]
  - Disease progression [None]
  - Dysaesthesia [None]
  - Depression [None]
  - Pulmonary congestion [None]
  - Acute respiratory failure [None]
